FAERS Safety Report 8187183-5 (Version None)
Quarter: 2012Q1

REPORT INFORMATION
  Report Type: 
  Country: None (occurrence: None)
  Receive Date: 20120306
  Receipt Date: 20120302
  Transmission Date: 20120608
  Serious: Yes (Other)
  Sender: FDA-Public Use
  Company Number: PL-BAYER-200818917GPV

PATIENT
  Age: 58 Year
  Sex: Male
  Weight: 84 kg

DRUGS (14)
  1. SORAFENIB (RAF KINASE INHIBITOR) [Suspect]
     Route: 048
     Dates: start: 20080521, end: 20080523
  2. METOPROLOL SUCCINATE [Concomitant]
     Indication: HYPERTENSION
     Dosage: DAILY DOSE 25 MG
     Route: 048
     Dates: start: 20040301
  3. ENARENAL [Concomitant]
     Indication: HYPERTENSION
     Dosage: DAILY DOSE 10 MG
     Route: 048
     Dates: start: 20040301
  4. SORAFENIB (RAF KINASE INHIBITOR) [Suspect]
     Route: 048
     Dates: start: 20081003
  5. SORAFENIB (RAF KINASE INHIBITOR) [Suspect]
     Dosage: 400 MG (DAILY DOSE), QD, ORAL
     Route: 048
  6. SORAFENIB (RAF KINASE INHIBITOR) [Suspect]
     Route: 048
     Dates: start: 20080808, end: 20080926
  7. CAPTOPRIL [Concomitant]
     Indication: HYPERTENSION
     Dosage: DAILY DOSE 12.5 MG
     Route: 048
     Dates: start: 20050308
  8. ALLOPURINOL [Concomitant]
     Indication: HYPERURICAEMIA
     Dosage: DAILY DOSE 200 MG
     Route: 048
     Dates: start: 20060613, end: 20080521
  9. SORAFENIB (RAF KINASE INHIBITOR) [Suspect]
     Indication: RENAL CELL CARCINOMA
     Route: 048
     Dates: start: 20071207, end: 20080523
  10. SORAFENIB (RAF KINASE INHIBITOR) [Suspect]
     Dosage: UNK
     Dates: end: 20101006
  11. DEXAMETHASONE [Concomitant]
     Indication: PROPHYLAXIS
     Dosage: DAILY DOSE 4 MG
     Route: 048
     Dates: start: 20071107, end: 20080406
  12. ALLOPURINOL [Concomitant]
     Dosage: DAILY DOSE 300 MG
     Route: 048
     Dates: start: 20080521
  13. LOPERAMIDE [Concomitant]
     Indication: DIARRHOEA
     Dosage: DAILY DOSE 2 MG
     Route: 048
     Dates: start: 20060613
  14. INDAPAMIDE [Concomitant]
     Indication: HYPERTENSION
     Dosage: DAILY DOSE 1.5 MG
     Route: 048
     Dates: start: 20050308

REACTIONS (1)
  - CHRONIC MYELOID LEUKAEMIA [None]
